FAERS Safety Report 9262760 (Version 1)
Quarter: 2013Q2

REPORT INFORMATION
  Report Type: Spontaneous
  Country: US (occurrence: None)
  Receive Date: 20130426
  Receipt Date: 20130426
  Transmission Date: 20140414
  Serious: Yes (Life-Threatening, Hospitalization)
  Sender: FDA-Public Use
  Company Number: None

PATIENT
  Age: 69 Year
  Sex: Male
  Weight: 101 kg

DRUGS (1)
  1. DILTIAZEM [Suspect]
     Indication: HYPERTENSION
     Route: 042
     Dates: start: 20130208, end: 20130208

REACTIONS (5)
  - Tremor [None]
  - Chills [None]
  - Swollen tongue [None]
  - Pharyngeal oedema [None]
  - Anaphylactic reaction [None]
